FAERS Safety Report 21756036 (Version 1)
Quarter: 2022Q4

REPORT INFORMATION
  Report Type: Spontaneous
  Country: US (occurrence: None)
  Receive Date: 20221219
  Receipt Date: 20221219
  Transmission Date: 20230113
  Serious: No
  Sender: FDA-Public Use
  Company Number: None

PATIENT
  Sex: Female

DRUGS (2)
  1. DEVICE [Suspect]
     Active Substance: DEVICE
     Indication: Pulmonary arterial hypertension
     Dosage: OTHER QUANTITY : 100NG/KG/MIN;?OTHER FREQUENCY : CONTINUOUS;?
     Route: 042
     Dates: start: 20210212
  2. FLOLAN [Suspect]
     Active Substance: EPOPROSTENOL SODIUM
     Route: 042

REACTIONS (4)
  - Recalled product administered [None]
  - Chest pain [None]
  - Gastrooesophageal reflux disease [None]
  - Headache [None]
